FAERS Safety Report 4742920-4 (Version None)
Quarter: 2005Q3

REPORT INFORMATION
  Report Type: 
  Country: None (occurrence: None)
  Receive Date: 20050811
  Receipt Date: 20050629
  Transmission Date: 20060218
  Serious: Yes (Other)
  Sender: FDA-Public Use
  Company Number: PHBS2005IE09287

PATIENT
  Age: 30 Year
  Sex: Male

DRUGS (4)
  1. TRILEPTAL [Suspect]
     Indication: EPILEPSY
     Dosage: 1000 MG/D
     Route: 048
     Dates: start: 20040630
  2. LEVETIRACETAM [Concomitant]
  3. LAMOTRIGINE [Concomitant]
  4. VALPROIC ACID [Concomitant]

REACTIONS (1)
  - LEUKAEMIA [None]
